FAERS Safety Report 19711665 (Version 2)
Quarter: 2022Q1

REPORT INFORMATION
  Report Type: Report from Study
  Country: US (occurrence: US)
  Receive Date: 20210816
  Receipt Date: 20220215
  Transmission Date: 20220423
  Serious: No
  Sender: FDA-Public Use
  Company Number: US-TG THERAPEUTICS INC.-TGT001962

PATIENT
  Age: 58 Year
  Sex: Female
  Weight: 64.853 kg

DRUGS (3)
  1. UMBRALISIB [Suspect]
     Active Substance: UMBRALISIB
     Indication: Splenic marginal zone lymphoma
     Dosage: 800 MILLIGRAM, QD
     Route: 048
     Dates: start: 20210515
  2. UMBRALISIB [Suspect]
     Active Substance: UMBRALISIB
     Indication: Lymphoma
  3. ZANUBRUTINIB [Suspect]
     Active Substance: ZANUBRUTINIB
     Indication: Product used for unknown indication
     Dosage: UNK
     Dates: end: 202105

REACTIONS (13)
  - Micturition urgency [Unknown]
  - Tremor [Unknown]
  - Musculoskeletal stiffness [Unknown]
  - Headache [Unknown]
  - Visual impairment [Unknown]
  - Pruritus [Unknown]
  - Taste disorder [Unknown]
  - Eye disorder [Unknown]
  - Sleep disorder [Unknown]
  - Coordination abnormal [Unknown]
  - Therapeutic response unexpected [Unknown]
  - Abdominal pain upper [Unknown]
  - Fatigue [Unknown]

NARRATIVE: CASE EVENT DATE: 20210515
